FAERS Safety Report 7096199-1 (Version None)
Quarter: 2010Q4

REPORT INFORMATION
  Report Type: 
  Country: None (occurrence: None)
  Receive Date: 20101111
  Receipt Date: 20101108
  Transmission Date: 20110411
  Serious: Yes (Hospitalization)
  Sender: FDA-Public Use
  Company Number: A0891324A

PATIENT
  Age: 83 Year
  Sex: Female

DRUGS (4)
  1. ARZERRA [Suspect]
     Route: 042
     Dates: start: 20100301
  2. VITAMINS [Concomitant]
  3. ACYCLOVIR SODIUM [Concomitant]
  4. DIGOXIN [Concomitant]

REACTIONS (2)
  - BLISTER [None]
  - CHEST PAIN [None]
